FAERS Safety Report 18331271 (Version 1)
Quarter: 2020Q3

REPORT INFORMATION
  Report Type: Spontaneous
  Country: CA (occurrence: CA)
  Receive Date: 20200930
  Receipt Date: 20200930
  Transmission Date: 20201103
  Serious: Yes (Other)
  Sender: FDA-Public Use
  Company Number: CA-JNJFOC-20200943145

PATIENT
  Age: 59 Year
  Sex: Male
  Weight: 88 kg

DRUGS (11)
  1. GABAPENTIN. [Concomitant]
     Active Substance: GABAPENTIN
     Route: 048
  2. GLYBURIDE. [Concomitant]
     Active Substance: GLYBURIDE
     Route: 048
  3. RAMIPRIL. [Concomitant]
     Active Substance: RAMIPRIL
     Route: 048
  4. ACETAMINOPHEN AND CODEINE [Concomitant]
     Active Substance: ACETAMINOPHEN\CODEINE PHOSPHATE
     Dosage: AS REQUIRED
     Route: 048
  5. CLOPIDOGREL BISULFATE. [Concomitant]
     Active Substance: CLOPIDOGREL BISULFATE
     Route: 048
  6. INFLIXIMAB, RECOMBINANT [Suspect]
     Active Substance: INFLIXIMAB
     Indication: CROHN^S DISEASE
     Route: 042
  7. INFLIXIMAB, RECOMBINANT [Suspect]
     Active Substance: INFLIXIMAB
     Indication: COLITIS ULCERATIVE
     Route: 042
  8. CHLORTHALIDONE. [Concomitant]
     Active Substance: CHLORTHALIDONE
     Route: 048
  9. ATORVASTATIN CALCIUM. [Concomitant]
     Active Substance: ATORVASTATIN CALCIUM
     Route: 048
  10. METFORMIN [Concomitant]
     Active Substance: METFORMIN HYDROCHLORIDE
     Route: 048
  11. PANTOPRAZOLE [Concomitant]
     Active Substance: PANTOPRAZOLE
     Route: 048

REACTIONS (14)
  - Cataract [Recovered/Resolved]
  - Arthritis [Recovered/Resolved]
  - Fatigue [Recovered/Resolved]
  - Blood magnesium decreased [Recovered/Resolved]
  - Peripheral swelling [Recovered/Resolved]
  - Blood pressure fluctuation [Recovered/Resolved]
  - Condition aggravated [Recovered/Resolved]
  - Anal ulcer [Recovered/Resolved]
  - Heart rate decreased [Recovered/Resolved]
  - Abdominal pain [Recovered/Resolved]
  - Infusion site extravasation [Recovered/Resolved]
  - Malaise [Recovered/Resolved]
  - Pain [Recovered/Resolved]
  - Pain in extremity [Recovered/Resolved]
